FAERS Safety Report 15258507 (Version 2)
Quarter: 2018Q3

REPORT INFORMATION
  Report Type: Report from Study
  Country: IN (occurrence: IN)
  Receive Date: 20180809
  Receipt Date: 20180921
  Transmission Date: 20181010
  Serious: Yes (Hospitalization)
  Sender: FDA-Public Use
  Company Number: IN-ROCHE-2162793

PATIENT
  Age: 66 Year
  Sex: Female
  Weight: 58.6 kg

DRUGS (5)
  1. ULTRACET [Concomitant]
     Active Substance: ACETAMINOPHEN\TRAMADOL HYDROCHLORIDE
     Indication: PAIN
     Route: 048
     Dates: start: 20180209
  2. LIQUID PARAFFIN [Concomitant]
     Dosage: 2?3 DROPS BOTH NOSTRIL
     Route: 050
     Dates: start: 20180720
  3. AMLO [Concomitant]
     Route: 048
     Dates: start: 20180527
  4. TRASTUZUMAB EMTANSINE [Suspect]
     Active Substance: ADO-TRASTUZUMAB EMTANSINE
     Indication: BREAST CANCER
     Dosage: 3.6 MG/KG AS LOADING DOSE FOR 1ST CYCLE FOR 90 MIN?AS PER PROTOCOL 3.6 MG/KG INTRAVENOUSLY (IV) OVER
     Route: 042
     Dates: start: 20180209, end: 20180720
  5. RAPID SR (UNK INGREDIENTS) [Concomitant]
     Route: 048
     Dates: start: 20180209

REACTIONS (2)
  - Gingival bleeding [Recovered/Resolved]
  - Thrombocytopenia [Recovered/Resolved]

NARRATIVE: CASE EVENT DATE: 20180729
